FAERS Safety Report 5501049-8 (Version None)
Quarter: 2007Q4

REPORT INFORMATION
  Report Type: 
  Country: None (occurrence: None)
  Receive Date: 20071029
  Receipt Date: 20071015
  Transmission Date: 20080405
  Serious: Yes (Hospitalization)
  Sender: FDA-Public Use
  Company Number: GB-RANBAXY-2007RR-10722

PATIENT

DRUGS (7)
  1. FRUSEMIDE [Suspect]
     Indication: CARDIAC FAILURE CONGESTIVE
     Dosage: 20 MG, QD
     Route: 048
     Dates: start: 20050101, end: 20051221
  2. SPIRONOLACTONE [Suspect]
     Indication: CARDIAC FAILURE CONGESTIVE
     Dosage: 100 MG, QD
     Route: 048
     Dates: start: 20051125, end: 20051221
  3. CO-AMILOFRUSE [Suspect]
     Indication: CARDIAC FAILURE CONGESTIVE
     Dosage: 1 DF, QD
     Route: 048
     Dates: start: 20050101, end: 20051221
  4. DUROGESIC [Suspect]
     Indication: BACK PAIN
     Dosage: 25 UG, UNK
     Route: 062
     Dates: start: 20051216, end: 20051221
  5. CO-CODAMOL [Concomitant]
     Dosage: 2 DF, PRN
     Route: 048
     Dates: end: 20051215
  6. LACTULOSE [Concomitant]
     Dosage: 10 ML, BID
     Route: 048
  7. SENNA [Concomitant]
     Dosage: 7.5 MG, QD
     Route: 048

REACTIONS (3)
  - DEHYDRATION [None]
  - NAUSEA [None]
  - VOMITING [None]
